FAERS Safety Report 4342853-1 (Version None)
Quarter: 2004Q2

REPORT INFORMATION
  Report Type: 
  Country: None (occurrence: None)
  Receive Date: 20040420
  Receipt Date: 20040420
  Transmission Date: 20050107
  Serious: Yes (Other)
  Sender: FDA-Public Use
  Company Number: None

PATIENT
  Age: 78 Year
  Sex: Female
  Weight: 68.0396 kg

DRUGS (8)
  1. GLIPIZIDE [Suspect]
     Indication: DIABETES MELLITUS
     Dosage: 1 BY MOUTH EVERY MORNING
     Route: 048
     Dates: start: 20040128, end: 20040411
  2. ATROVENT [Concomitant]
  3. ULTRAM [Concomitant]
  4. MICRO-K [Concomitant]
  5. LESCOL [Concomitant]
  6. WARFARIN SODIUM [Concomitant]
  7. NORVASC [Concomitant]
  8. AXID [Concomitant]

REACTIONS (1)
  - BLOOD GLUCOSE INCREASED [None]
